FAERS Safety Report 7994622-9 (Version None)
Quarter: 2011Q4

REPORT INFORMATION
  Report Type: 
  Country: None (occurrence: None)
  Receive Date: 20111220
  Receipt Date: 20111214
  Transmission Date: 20120403
  Serious: Yes (Other)
  Sender: FDA-Public Use
  Company Number: ZA-ABBOTT-11P-143-0881538-00

PATIENT
  Age: 19 Year
  Sex: Female

DRUGS (2)
  1. VALPROIC ACID [Suspect]
     Indication: AFFECTIVE DISORDER
     Dosage: GASTRO-RESISTANT TABLET
     Route: 048
     Dates: start: 20111111, end: 20111116
  2. VALPROIC ACID [Suspect]
     Indication: MOOD SWINGS

REACTIONS (4)
  - SYNCOPE [None]
  - HYPOAESTHESIA [None]
  - HEADACHE [None]
  - NAUSEA [None]
